FAERS Safety Report 21476112 (Version 3)
Quarter: 2024Q2

REPORT INFORMATION
  Report Type: Report from Study
  Country: US (occurrence: US)
  Receive Date: 20221019
  Receipt Date: 20240423
  Transmission Date: 20240716
  Serious: Yes (Hospitalization, Other)
  Sender: FDA-Public Use
  Company Number: US-ABBVIE-4159586

PATIENT
  Age: 69 Year
  Sex: Female

DRUGS (3)
  1. IMBRUVICA [Suspect]
     Active Substance: IBRUTINIB
     Indication: Chronic lymphocytic leukaemia
     Dosage: STRENGTH: 420 MG
     Route: 048
     Dates: start: 201804
  2. IMBRUVICA [Suspect]
     Active Substance: IBRUTINIB
     Indication: Chronic lymphocytic leukaemia
     Dosage: STRENGTH: 140 MG
     Route: 048
     Dates: start: 20160421, end: 20180418
  3. COVID-19 VACCINE NOS [Suspect]
     Active Substance: COVID-19 VACCINE NOS
     Indication: COVID-19 immunisation
     Dosage: ONCE
     Route: 030

REACTIONS (12)
  - Colon operation [Unknown]
  - Full blood count decreased [Unknown]
  - Lymphadenopathy [Unknown]
  - Therapeutic product effect decreased [Unknown]
  - Full blood count abnormal [Unknown]
  - Full blood count abnormal [Unknown]
  - Infection [Unknown]
  - Mobility decreased [Unknown]
  - Thrombosis [Unknown]
  - COVID-19 [Unknown]
  - Pneumonia [Unknown]
  - Immunisation reaction [Unknown]

NARRATIVE: CASE EVENT DATE: 20200101
